FAERS Safety Report 8194082-1 (Version None)
Quarter: 2012Q1

REPORT INFORMATION
  Report Type: 
  Country: None (occurrence: None)
  Receive Date: 20120308
  Receipt Date: 20120229
  Transmission Date: 20120608
  Serious: Yes (Other)
  Sender: FDA-Public Use
  Company Number: JP-EISAI INC-E7389-02084-SPO-JP

PATIENT
  Age: 56 Year
  Sex: Female

DRUGS (7)
  1. PROTECADIN [Concomitant]
     Indication: PROPHYLAXIS
     Route: 048
     Dates: start: 20120118
  2. ZOLPIDEM [Concomitant]
     Route: 048
     Dates: start: 20120118
  3. MAGMITT [Concomitant]
     Indication: CONSTIPATION
     Route: 048
     Dates: start: 20120118
  4. HALAVEN [Suspect]
     Indication: BREAST CANCER RECURRENT
     Route: 041
     Dates: start: 20120127
  5. LOXONIN [Concomitant]
     Indication: CANCER PAIN
     Route: 048
     Dates: start: 20120118
  6. ALPRAZOLAM [Concomitant]
     Route: 048
     Dates: start: 20120118
  7. MEDROXYPROGESTERONE ACETATE [Concomitant]
     Route: 048
     Dates: start: 20120118

REACTIONS (3)
  - LEUKOPENIA [None]
  - INTERSTITIAL LUNG DISEASE [None]
  - NEUTROPENIA [None]
